FAERS Safety Report 8597373-5 (Version None)
Quarter: 2012Q3

REPORT INFORMATION
  Report Type: 
  Country: None (occurrence: None)
  Receive Date: 20120816
  Receipt Date: 20120802
  Transmission Date: 20120928
  Serious: Yes (Other)
  Sender: FDA-Public Use
  Company Number: DE-RANBAXY-2012RR-58882

PATIENT
  Sex: Female

DRUGS (2)
  1. ATORVASTATIN [Suspect]
     Indication: PRODUCT USED FOR UNKNOWN INDICATION
     Dosage: AT 16-18H EVERY DAY BUT ON 02-AUG-2012 SHE FORGOT
     Route: 048
     Dates: start: 20120601
  2. ASPIRIN [Concomitant]
     Indication: PRODUCT USED FOR UNKNOWN INDICATION
     Dosage: 100 [UNITS NOT REPORTED], QD
     Route: 065

REACTIONS (2)
  - PARAESTHESIA [None]
  - INSOMNIA [None]
